FAERS Safety Report 10168240 (Version 2)
Quarter: 2014Q2

REPORT INFORMATION
  Report Type: Spontaneous
  Country: FR (occurrence: FR)
  Receive Date: 20140512
  Receipt Date: 20140519
  Transmission Date: 20141212
  Serious: Yes (Hospitalization, Other)
  Sender: FDA-Public Use
  Company Number: FR-009507513-1405FRA003799

PATIENT
  Age: 70 Year
  Sex: Male

DRUGS (17)
  1. ESMERON [Suspect]
     Indication: ANAESTHESIA
     Dosage: UNK
     Route: 042
     Dates: start: 20120903, end: 20120903
  2. HEPARIN SODIUM [Suspect]
     Indication: EXTRACORPOREAL CIRCULATION
     Dosage: 20000 IU + 11000 BOLUS, UNK
     Route: 042
     Dates: start: 20120903, end: 20120903
  3. PAROXETINE [Suspect]
     Dosage: 1 DF, QD
     Route: 048
  4. KETAMINE HYDROCHLORIDE [Suspect]
     Indication: ANAESTHESIA
     Dosage: UNK
     Route: 042
     Dates: start: 20120903, end: 20120903
  5. ZINNAT [Suspect]
     Indication: ANAESTHESIA
     Dosage: UNK
     Route: 042
     Dates: start: 20120903, end: 20120903
  6. PROTAMINE SULFATE [Suspect]
     Dosage: UNK
     Route: 042
     Dates: start: 20120903, end: 20120903
  7. EXACYL [Suspect]
     Indication: HAEMORRHAGE PROPHYLAXIS
     Dosage: UNK
     Route: 042
     Dates: start: 20120903, end: 20120903
  8. ATARAX (ALPRAZOLAM) [Suspect]
     Indication: ANXIETY
     Dosage: 50 MG, UNK
     Route: 048
     Dates: start: 20120902, end: 20120903
  9. ATARAX (ALPRAZOLAM) [Suspect]
     Dosage: 75 MG, UNK
     Route: 048
     Dates: start: 20120902, end: 20120903
  10. GABAPENTIN [Suspect]
     Dosage: UNK
     Route: 048
     Dates: start: 20120903, end: 20120903
  11. MIDAZOLAM [Suspect]
     Indication: ANAESTHESIA
     Dosage: UNK
     Route: 042
     Dates: start: 20120903, end: 20120930
  12. ULTIVA [Suspect]
     Indication: ANAESTHESIA
     Dosage: UNK
     Route: 042
     Dates: start: 20120903, end: 20120903
  13. PROPOFOL LIPURO [Suspect]
     Indication: ANAESTHESIA
     Dosage: UNK
     Route: 042
     Dates: start: 20120903, end: 20120903
  14. TADENAN [Suspect]
     Indication: MICTURITION DISORDER
     Dosage: 1 DF, BID
     Route: 048
     Dates: end: 20120903
  15. TANAKAN [Suspect]
     Indication: COGNITIVE DISORDER
     Dosage: 40 MG, TID
     Route: 048
  16. LEXOMIL [Suspect]
     Indication: ANXIETY
     Dosage: 1.5 MG, QD
     Route: 048
     Dates: end: 20120903
  17. INEXIUM [Concomitant]
     Indication: PROPHYLAXIS AGAINST GASTROINTESTINAL ULCER
     Dosage: UNK
     Route: 048

REACTIONS (4)
  - Incision site haemorrhage [Recovered/Resolved]
  - Pericardial haemorrhage [Recovered/Resolved]
  - Cardiac tamponade [Recovered/Resolved]
  - Cardio-respiratory arrest [Recovered/Resolved with Sequelae]
